FAERS Safety Report 21819848 (Version 1)
Quarter: 2023Q1

REPORT INFORMATION
  Report Type: Spontaneous
  Country: CN (occurrence: CN)
  Receive Date: 20230104
  Receipt Date: 20230104
  Transmission Date: 20230418
  Serious: Yes (Life-Threatening, Hospitalization, Other)
  Sender: FDA-Public Use
  Company Number: CN-ABBVIE-4256954

PATIENT
  Age: 37 Year
  Sex: Female
  Weight: 70 kg

DRUGS (1)
  1. VENCLEXTA [Suspect]
     Active Substance: VENETOCLAX
     Indication: Acute myeloid leukaemia
     Dosage: 400 MILLIGRAM
     Route: 048
     Dates: start: 20221208, end: 20221222

REACTIONS (2)
  - Myelosuppression [Recovering/Resolving]
  - Pancytopenia [Unknown]

NARRATIVE: CASE EVENT DATE: 20221221
